FAERS Safety Report 6705334-3 (Version None)
Quarter: 2010Q2

REPORT INFORMATION
  Report Type: 
  Country: None (occurrence: None)
  Receive Date: 20100501
  Receipt Date: 20100420
  Transmission Date: 20101027
  Serious: Yes (Other)
  Sender: FDA-Public Use
  Company Number: DE-ELI_LILLY_AND_COMPANY-DE201004005389

PATIENT
  Sex: Male

DRUGS (1)
  1. ZYPREXA [Suspect]
     Indication: MENTAL DISORDER
     Dosage: UNK, UNK
     Dates: start: 20040501

REACTIONS (4)
  - BREAST CANCER [None]
  - BREAST PAIN [None]
  - GYNAECOMASTIA [None]
  - WEIGHT INCREASED [None]
